FAERS Safety Report 17164738 (Version 2)
Quarter: 2020Q2

REPORT INFORMATION
  Report Type: Report from Study
  Country: US (occurrence: US)
  Receive Date: 20191217
  Receipt Date: 20200630
  Transmission Date: 20200713
  Serious: Yes (Other)
  Sender: FDA-Public Use
  Company Number: US-EMD SERONO-9134965

PATIENT
  Age: 30 Year
  Sex: Female

DRUGS (3)
  1. GAMUNEX [Concomitant]
     Active Substance: HUMAN IMMUNOGLOBULIN G
     Indication: MULTIPLE SCLEROSIS
  2. REBIF [Suspect]
     Active Substance: INTERFERON BETA-1A
     Indication: MULTIPLE SCLEROSIS
     Route: 058
     Dates: start: 20181107, end: 20190415
  3. REBIF [Suspect]
     Active Substance: INTERFERON BETA-1A
     Route: 058
     Dates: start: 20191001

REACTIONS (4)
  - Headache [Unknown]
  - Syncope [Unknown]
  - Muscular weakness [Unknown]
  - Rash [Unknown]

NARRATIVE: CASE EVENT DATE: 20191202
